FAERS Safety Report 6041043-4 (Version None)
Quarter: 2009Q1

REPORT INFORMATION
  Report Type: 
  Country: None (occurrence: None)
  Receive Date: 20090116
  Receipt Date: 20080911
  Transmission Date: 20090719
  Serious: Yes (Other)
  Sender: FDA-Public Use
  Company Number: US-BRISTOL-MYERS SQUIBB COMPANY-14287023

PATIENT
  Age: 51 Year
  Sex: Female

DRUGS (3)
  1. ABILIFY [Suspect]
     Indication: BIPOLAR DISORDER
     Dosage: 15APR08-29APR08 5MG, 29APR08-28JUL08 10MG
     Route: 048
     Dates: start: 20080415, end: 20080728
  2. ABILIFY [Suspect]
     Indication: MAJOR DEPRESSION
     Dosage: 15APR08-29APR08 5MG, 29APR08-28JUL08 10MG
     Route: 048
     Dates: start: 20080415, end: 20080728
  3. CYMBALTA [Concomitant]

REACTIONS (1)
  - WEIGHT INCREASED [None]
